FAERS Safety Report 25459741 (Version 1)
Quarter: 2025Q2

REPORT INFORMATION
  Report Type: Report from Study
  Country: US (occurrence: US)
  Receive Date: 20250620
  Receipt Date: 20250620
  Transmission Date: 20250717
  Serious: No
  Sender: ACADIA PHARMACEUTICALS
  Company Number: US-ACADIA PHARMACEUTICALS INC.-ACA-2025-PIM-007229

PATIENT
  Sex: Male

DRUGS (10)
  1. NUPLAZID [Suspect]
     Active Substance: PIMAVANSERIN TARTRATE
     Indication: Parkinson^s disease psychosis
     Dosage: 34 MILLIGRAM, QD
     Route: 048
     Dates: start: 20250515
  2. ATORVASTATIN [Concomitant]
     Active Substance: ATORVASTATIN
  3. CARBIDOPA\LEVODOPA [Concomitant]
     Active Substance: CARBIDOPA\LEVODOPA
  4. LEVOTHYROXINE [Concomitant]
     Active Substance: LEVOTHYROXINE
  5. MELOXICAM [Concomitant]
     Active Substance: MELOXICAM
  6. METOPROLOL TARTRATE [Concomitant]
     Active Substance: METOPROLOL TARTRATE
  7. ROPINIROLE [Concomitant]
     Active Substance: ROPINIROLE
  8. VESICARE [Concomitant]
     Active Substance: SOLIFENACIN SUCCINATE
  9. DUTASTERIDE [Concomitant]
     Active Substance: DUTASTERIDE
  10. XARELTO [Concomitant]
     Active Substance: RIVAROXABAN

REACTIONS (1)
  - Drug ineffective [Not Recovered/Not Resolved]
